FAERS Safety Report 6619243-1 (Version None)
Quarter: 2010Q1

REPORT INFORMATION
  Report Type: 
  Country: None (occurrence: None)
  Receive Date: 20100304
  Receipt Date: 20100212
  Transmission Date: 20100710
  Serious: Yes (Death, Hospitalization)
  Sender: FDA-Public Use
  Company Number: AECAN200900302

PATIENT
  Age: 83 Year
  Sex: Female
  Weight: 57 kg

DRUGS (16)
  1. ALBUMIN (HUMAN) [Suspect]
     Indication: COLITIS ISCHAEMIC
     Dosage: 200 ML;TOTAL;IV
     Route: 042
     Dates: start: 20091014, end: 20091014
  2. ALBUMIN (HUMAN) [Suspect]
     Indication: PERITONITIS
     Dosage: 200 ML;TOTAL;IV
     Route: 042
     Dates: start: 20091014, end: 20091014
  3. SOLU-CORTEF [Concomitant]
  4. DOBUTAMINE [Concomitant]
  5. LEVOPHED [Concomitant]
  6. NORMAL SALINE [Concomitant]
  7. VENTOLIN [Concomitant]
  8. HEPARIN [Concomitant]
  9. FENTANYL [Concomitant]
  10. DEXTROSE AND SODIUM CHLORIDE [Concomitant]
  11. RANITIDINE [Concomitant]
  12. TYLENOL (CAPLET) [Concomitant]
  13. INSULIN [Concomitant]
  14. PIPERACILLIN AND TAZOBACTAM [Concomitant]
  15. ASPIRIN [Concomitant]
  16. ATIVAN [Concomitant]

REACTIONS (11)
  - ATELECTASIS [None]
  - BLOOD PRESSURE DECREASED [None]
  - BLOOD PRESSURE FLUCTUATION [None]
  - CHRONIC OBSTRUCTIVE PULMONARY DISEASE [None]
  - DRUG INTOLERANCE [None]
  - HYPERTENSION [None]
  - INCORRECT DOSE ADMINISTERED [None]
  - INFUSION RELATED REACTION [None]
  - POST PROCEDURAL COMPLICATION [None]
  - PYREXIA [None]
  - RESPIRATORY FAILURE [None]
